FAERS Safety Report 17777597 (Version 1)
Quarter: 2020Q2

REPORT INFORMATION
  Report Type: Spontaneous
  Country: US (occurrence: US)
  Receive Date: 20200513
  Receipt Date: 20200513
  Transmission Date: 20200714
  Serious: No
  Sender: FDA-Public Use
  Company Number: US-BAUSCH-BL-2020-013671

PATIENT
  Age: 60 Year
  Sex: Female

DRUGS (2)
  1. XIFAXAN [Suspect]
     Active Substance: RIFAXIMIN
     Indication: IRRITABLE BOWEL SYNDROME
     Dosage: STARTED ABOUT 10 DAYS AGO
     Route: 048
     Dates: start: 202004, end: 20200503
  2. XIFAXAN [Suspect]
     Active Substance: RIFAXIMIN
     Route: 048
     Dates: start: 20200505

REACTIONS (5)
  - Wrong technique in product usage process [Unknown]
  - Product dose omission [Unknown]
  - Therapeutic product effect incomplete [Unknown]
  - Product use complaint [Unknown]
  - Abdominal pain [Unknown]

NARRATIVE: CASE EVENT DATE: 2020
